FAERS Safety Report 5833329-0 (Version None)
Quarter: 2008Q3

REPORT INFORMATION
  Report Type: 
  Country: None (occurrence: None)
  Receive Date: 20080804
  Receipt Date: 20080804
  Transmission Date: 20090109
  Serious: Yes (Disabling)
  Sender: FDA-Public Use
  Company Number: None

PATIENT
  Sex: Female
  Weight: 72.5755 kg

DRUGS (3)
  1. AVELOX [Suspect]
     Indication: DENTAL CARE
     Dosage: 600 2 X'S ORAL
     Route: 048
     Dates: start: 20080228
  2. CIPRO [Suspect]
     Indication: EAR INFECTION
     Dosage: 600 ORAL
     Route: 048
     Dates: start: 20060911
  3. CIPRO [Suspect]
     Indication: PNEUMONIA
     Dosage: 600 ORAL
     Route: 048
     Dates: start: 20060911

REACTIONS (4)
  - ASTHENIA [None]
  - EAR INFECTION [None]
  - TENDON RUPTURE [None]
  - TENDONITIS [None]
